FAERS Safety Report 12106304 (Version 1)
Quarter: 2016Q1

REPORT INFORMATION
  Report Type: Spontaneous
  Country: US (occurrence: US)
  Receive Date: 20160223
  Receipt Date: 20160223
  Transmission Date: 20160526
  Serious: Yes (Other)
  Sender: FDA-Public Use
  Company Number: US-PFIZER INC-2016108306

PATIENT
  Sex: Male

DRUGS (1)
  1. ADVIL [Suspect]
     Active Substance: IBUPROFEN
     Dosage: DRINK 4 ADVIL LIQUIGELS 200 MG

REACTIONS (3)
  - Pharyngeal oedema [Unknown]
  - Swollen tongue [Unknown]
  - Throat tightness [Unknown]
